FAERS Safety Report 9613093 (Version 1)
Quarter: 2013Q4

REPORT INFORMATION
  Report Type: Report from Study
  Country: US (occurrence: US)
  Receive Date: 20131010
  Receipt Date: 20131010
  Transmission Date: 20140711
  Serious: Yes (Hospitalization)
  Sender: FDA-Public Use
  Company Number: US-ROCHE-1285989

PATIENT
  Age: 82 Year
  Sex: Male

DRUGS (8)
  1. CLONAZEPAM [Suspect]
     Indication: ANXIETY
     Route: 065
  2. ACETAMINOPHEN [Concomitant]
     Route: 065
  3. BUDESONIDE [Concomitant]
     Route: 065
  4. CETIRIZINE [Concomitant]
     Route: 065
  5. FOLIC ACID [Concomitant]
     Route: 065
  6. MONTELUKAST SODIUM [Concomitant]
     Route: 065
  7. OMEPRAZOLE [Concomitant]
     Route: 065
  8. SIMVASTATIN [Concomitant]
     Route: 065

REACTIONS (27)
  - Chronic obstructive pulmonary disease [Unknown]
  - Asthma [Unknown]
  - Sleep apnoea syndrome [Unknown]
  - Nausea [Unknown]
  - Chest pain [Unknown]
  - Lung infiltration [Unknown]
  - Dyspnoea [Unknown]
  - Pneumonia [Unknown]
  - Pneumonia [Unknown]
  - Acute respiratory failure [Unknown]
  - Lower respiratory tract infection [Unknown]
  - Blood glucose increased [Unknown]
  - Diabetes mellitus [Unknown]
  - Somnolence [Unknown]
  - Barium swallow abnormal [Unknown]
  - Weight decreased [Unknown]
  - Lip pain [Unknown]
  - Oedema peripheral [Unknown]
  - Oedema [Unknown]
  - Rales [Unknown]
  - Rhinorrhoea [Unknown]
  - Blood immunoglobulin E increased [Unknown]
  - Heart rate irregular [Unknown]
  - Wheezing [Unknown]
  - Dyspnoea [Unknown]
  - Swelling face [Unknown]
  - Apathy [Unknown]
